FAERS Safety Report 5525837-7 (Version None)
Quarter: 2007Q4

REPORT INFORMATION
  Report Type: 
  Country: None (occurrence: None)
  Receive Date: 20071126
  Receipt Date: 20071114
  Transmission Date: 20080405
  Serious: Yes (Other)
  Sender: FDA-Public Use
  Company Number: US-PFIZER INC-2007087069

PATIENT
  Sex: Female
  Weight: 40.8 kg

DRUGS (1)
  1. CHANTIX [Suspect]
     Indication: TOBACCO ABUSE
     Dates: start: 20070918, end: 20071009

REACTIONS (3)
  - DECREASED ACTIVITY [None]
  - DEPRESSED MOOD [None]
  - TREATMENT NONCOMPLIANCE [None]
